FAERS Safety Report 4867729-2 (Version None)
Quarter: 2005Q4

REPORT INFORMATION
  Report Type: 
  Country: None (occurrence: None)
  Receive Date: 20051222
  Receipt Date: 20020413
  Transmission Date: 20060501
  Serious: Yes (Hospitalization, Other)
  Sender: FDA-Public Use
  Company Number: HQ2079005APR2000

PATIENT
  Age: 69 Year
  Sex: Male
  Weight: 95.1 kg

DRUGS (1)
  1. MYLOTARG [Suspect]
     Indication: ACUTE MYELOID LEUKAEMIA
     Dosage: 9 MG/M^2, INTRAVENOUS
     Route: 042
     Dates: start: 20000309, end: 20000309

REACTIONS (2)
  - CATHETER RELATED COMPLICATION [None]
  - THROMBOPHLEBITIS [None]
